FAERS Safety Report 5809235-4 (Version None)
Quarter: 2008Q3

REPORT INFORMATION
  Report Type: 
  Country: None (occurrence: None)
  Receive Date: 20080714
  Receipt Date: 20080708
  Transmission Date: 20090109
  Serious: Yes (Hospitalization)
  Sender: FDA-Public Use
  Company Number: JP-PFIZER INC-2008056572

PATIENT
  Sex: Male

DRUGS (3)
  1. ZOLOFT [Suspect]
     Indication: DEPRESSION
     Dosage: DAILY DOSE:50MG
     Route: 048
     Dates: start: 20080620, end: 20080704
  2. AMOBAN [Concomitant]
  3. HIRNAMIN [Concomitant]

REACTIONS (2)
  - LIVER DISORDER [None]
  - METABOLIC ACIDOSIS [None]
